FAERS Safety Report 20102390 (Version 4)
Quarter: 2022Q3

REPORT INFORMATION
  Report Type: Spontaneous
  Country: US (occurrence: US)
  Receive Date: 20211123
  Receipt Date: 20220704
  Transmission Date: 20221026
  Serious: Yes (Other)
  Sender: FDA-Public Use
  Company Number: US-PFIZER INC-202101334135

PATIENT
  Age: 27 Year
  Sex: Female

DRUGS (1)
  1. XELJANZ [Suspect]
     Active Substance: TOFACITINIB CITRATE
     Indication: Colitis ulcerative
     Dosage: 10 MG, 2X/DAY
     Route: 048
     Dates: start: 20210721, end: 202205

REACTIONS (6)
  - Colectomy [Unknown]
  - Haematochezia [Unknown]
  - Therapeutic response unexpected [Unknown]
  - Frequent bowel movements [Unknown]
  - Bowel movement irregularity [Unknown]
  - Malaise [Unknown]

NARRATIVE: CASE EVENT DATE: 20220531
